FAERS Safety Report 6565038-7 (Version None)
Quarter: 2010Q1

REPORT INFORMATION
  Report Type: 
  Country: None (occurrence: None)
  Receive Date: 20100201
  Receipt Date: 20100125
  Transmission Date: 20100710
  Serious: Yes (Other)
  Sender: FDA-Public Use
  Company Number: US-BAYER-201011252NA

PATIENT
  Sex: Female

DRUGS (5)
  1. BETASERON [Suspect]
     Indication: RELAPSING-REMITTING MULTIPLE SCLEROSIS
     Route: 058
     Dates: start: 20001001, end: 20030101
  2. NOVANTRONE [Concomitant]
  3. CELLCEPT [Concomitant]
  4. COPAXONE [Concomitant]
  5. TYSABRI [Concomitant]

REACTIONS (2)
  - CARDIAC FAILURE CONGESTIVE [None]
  - MULTIPLE SCLEROSIS [None]
